FAERS Safety Report 10263748 (Version 1)
Quarter: 2014Q2

REPORT INFORMATION
  Report Type: Spontaneous
  Country: US (occurrence: US)
  Receive Date: 20140627
  Receipt Date: 20140627
  Transmission Date: 20141212
  Serious: No
  Sender: FDA-Public Use
  Company Number: US-009507513-1406USA011627

PATIENT
  Sex: Female

DRUGS (1)
  1. SINGULAIR [Suspect]
     Route: 048

REACTIONS (5)
  - Oropharyngeal pain [Unknown]
  - Feeling abnormal [Unknown]
  - Eye pruritus [Unknown]
  - Lacrimation increased [Unknown]
  - Cough [Unknown]
